FAERS Safety Report 15577050 (Version 1)
Quarter: 2018Q4

REPORT INFORMATION
  Report Type: Spontaneous
  Country: NL (occurrence: NL)
  Receive Date: 20181101
  Receipt Date: 20181101
  Transmission Date: 20190205
  Serious: Yes (Death, Life-Threatening, Other)
  Sender: FDA-Public Use
  Company Number: NL-ASTRAZENECA-2018SF41957

PATIENT
  Age: 62 Year
  Sex: Female

DRUGS (15)
  1. ALENDRONINEZUUR [Concomitant]
     Active Substance: ALENDRONIC ACID
  2. PANTOPRAZOL [Concomitant]
     Active Substance: PANTOPRAZOLE SODIUM
  3. VOLTAREN EMGEL [Concomitant]
  4. BISOPROLOL [Concomitant]
     Active Substance: BISOPROLOL
  5. SERTRALINE [Concomitant]
     Active Substance: SERTRALINE HYDROCHLORIDE
  6. PRED [Concomitant]
     Active Substance: PREDNISONE
  7. FASENRA [Suspect]
     Active Substance: BENRALIZUMAB
     Route: 058
  8. IRBESARTAN. [Concomitant]
     Active Substance: IRBESARTAN
  9. SALBUTAMOL [Concomitant]
     Active Substance: ALBUTEROL
  10. CELLCEPT [Concomitant]
     Active Substance: MYCOPHENOLATE MOFETIL\MYCOPHENOLATE MOFETIL HYDROCHLORIDE
  11. DIGOXINE [Concomitant]
     Active Substance: DIGOXIN
  12. ASCAL [Concomitant]
  13. SIMVASTATIN. [Concomitant]
     Active Substance: SIMVASTATIN
  14. TRAMADOL. [Concomitant]
     Active Substance: TRAMADOL
  15. CALCICHEW [Concomitant]
     Active Substance: CALCIUM CARBONATE

REACTIONS (5)
  - Dyspnoea [Unknown]
  - Death [Fatal]
  - Apnoea [Unknown]
  - Dizziness [Unknown]
  - Loss of consciousness [Unknown]
